FAERS Safety Report 4457346-0 (Version None)
Quarter: 2004Q3

REPORT INFORMATION
  Report Type: 
  Country: None (occurrence: None)
  Receive Date: 20040922
  Receipt Date: 20040908
  Transmission Date: 20050211
  Serious: Yes (Hospitalization)
  Sender: FDA-Public Use
  Company Number: USA040977770

PATIENT
  Age: 80 Year
  Sex: Female
  Weight: 51 kg

DRUGS (5)
  1. FORTEO [Suspect]
     Indication: OSTEOPOROSIS
     Dosage: 20 UG/1 DAY
     Dates: start: 20040501
  2. PREVACID [Concomitant]
  3. PRAVACHOL [Concomitant]
  4. ASPIRIN [Concomitant]
  5. PREDNISONE [Concomitant]

REACTIONS (11)
  - ABDOMINAL PAIN [None]
  - BACTERIAL INFECTION [None]
  - BLOOD PRESSURE INCREASED [None]
  - CHEST PAIN [None]
  - CHOLELITHIASIS [None]
  - DIARRHOEA [None]
  - FATIGUE [None]
  - GASTRIC DISORDER [None]
  - MEDICATION ERROR [None]
  - PHARMACEUTICAL PRODUCT COMPLAINT [None]
  - WEIGHT DECREASED [None]
